FAERS Safety Report 8903489 (Version 6)
Quarter: 2017Q3

REPORT INFORMATION
  Report Type: Spontaneous
  Country: US (occurrence: US)
  Receive Date: 20121112
  Receipt Date: 20170822
  Transmission Date: 20171128
  Serious: Yes (Disabling)
  Sender: FDA-Public Use
  Company Number: US-009507513-1211USA004424

PATIENT
  Sex: Male

DRUGS (2)
  1. ROGAINE [Suspect]
     Active Substance: MINOXIDIL
     Indication: ALOPECIA
     Dosage: 5% FOAM, BID
     Dates: start: 20080911
  2. PROPECIA [Suspect]
     Active Substance: FINASTERIDE
     Indication: ALOPECIA
     Dosage: 1 MG, QD
     Route: 048
     Dates: start: 20081119, end: 200908

REACTIONS (16)
  - Anxiety [Unknown]
  - Heart rate increased [Unknown]
  - Asthenia [Unknown]
  - Pain [Unknown]
  - Blood testosterone decreased [Unknown]
  - Alopecia [Unknown]
  - Erectile dysfunction [Not Recovered/Not Resolved]
  - Depression [Not Recovered/Not Resolved]
  - Fatigue [Not Recovered/Not Resolved]
  - Libido decreased [Recovered/Resolved]
  - Attention deficit/hyperactivity disorder [Unknown]
  - Neck pain [Not Recovered/Not Resolved]
  - Weight increased [Unknown]
  - Acne [Unknown]
  - Crepitations [Unknown]
  - Vitamin D deficiency [Unknown]

NARRATIVE: CASE EVENT DATE: 2010
